FAERS Safety Report 20788942 (Version 1)
Quarter: 2022Q2

REPORT INFORMATION
  Report Type: Spontaneous
  Country: US (occurrence: None)
  Receive Date: 20220504
  Receipt Date: 20220504
  Transmission Date: 20220721
  Serious: Yes (Death)
  Sender: FDA-Public Use
  Company Number: None

PATIENT
  Age: 83 Year
  Sex: Female
  Weight: 45.45 kg

DRUGS (19)
  1. ARANESP [Suspect]
     Active Substance: DARBEPOETIN ALFA
     Indication: Chronic kidney disease
     Dosage: FREQUENCY : MONTHLY;?
     Route: 058
  2. ASCORBIC ACID [Concomitant]
     Active Substance: ASCORBIC ACID
  3. ASPIRIN [Concomitant]
  4. CLONIDINE [Concomitant]
     Active Substance: CLONIDINE
  5. FLUCINONIDE [Concomitant]
  6. FUROSEMIDE [Concomitant]
     Active Substance: FUROSEMIDE
  7. GABAPENTIN [Concomitant]
     Active Substance: GABAPENTIN
  8. LACTULOSE [Concomitant]
     Active Substance: LACTULOSE
  9. MELATONIN [Concomitant]
  10. MEMANTINE [Concomitant]
     Active Substance: MEMANTINE
  11. METOPROLOL [Concomitant]
  12. MIRTAZAPINE [Concomitant]
     Active Substance: MIRTAZAPINE
  13. MULTIVITAMIN [Concomitant]
  14. OMEPRAZOLE [Concomitant]
     Active Substance: OMEPRAZOLE
  15. ONDANSETRON [Concomitant]
     Active Substance: ONDANSETRON
  16. SPIRONOLACTONE [Concomitant]
  17. TRAZODONE [Concomitant]
     Active Substance: TRAZODONE HYDROCHLORIDE
  18. VITAMIN D3 [Concomitant]
     Active Substance: CHOLECALCIFEROL
  19. ZOFRAN [Concomitant]
     Active Substance: ONDANSETRON HYDROCHLORIDE

REACTIONS (1)
  - Death [None]

NARRATIVE: CASE EVENT DATE: 20220501
